FAERS Safety Report 18652693 (Version 1)
Quarter: 2020Q4

REPORT INFORMATION
  Report Type: Report from Study
  Country: BR (occurrence: BR)
  Receive Date: 20201223
  Receipt Date: 20201223
  Transmission Date: 20210114
  Serious: Yes (Death)
  Sender: FDA-Public Use
  Company Number: NVSC2019BR018998

PATIENT
  Age: 75 Year
  Sex: Female

DRUGS (4)
  1. COSENTYX [Suspect]
     Active Substance: SECUKINUMAB
     Dosage: 300 MG, UNKNOWN
     Route: 065
     Dates: start: 201906
  2. COSENTYX [Suspect]
     Active Substance: SECUKINUMAB
     Dosage: UNK
     Route: 065
     Dates: start: 20191014
  3. COSENTYX [Suspect]
     Active Substance: SECUKINUMAB
     Dosage: UNK
     Route: 065
     Dates: start: 20201020
  4. COSENTYX [Suspect]
     Active Substance: SECUKINUMAB
     Indication: PSORIASIS
     Dosage: UNK
     Route: 065
     Dates: start: 20190415

REACTIONS (10)
  - COVID-19 [Fatal]
  - Infection [Unknown]
  - Rhinitis [Unknown]
  - Oral candidiasis [Recovered/Resolved]
  - Oropharyngeal pain [Unknown]
  - Dysphonia [Unknown]
  - Oropharyngeal discomfort [Unknown]
  - Throat irritation [Unknown]
  - Secretion discharge [Unknown]
  - Influenza [Unknown]

NARRATIVE: CASE EVENT DATE: 20190927
